FAERS Safety Report 5429237-X (Version None)
Quarter: 2007Q3

REPORT INFORMATION
  Report Type: 
  Country: None (occurrence: None)
  Receive Date: 20070827
  Receipt Date: 20070827
  Transmission Date: 20080115
  Serious: Yes (Hospitalization)
  Sender: FDA-Public Use
  Company Number: None

PATIENT
  Age: 81 Year
  Sex: Male
  Weight: 58.2 kg

DRUGS (2)
  1. COUMADIN [Suspect]
     Indication: CARDIAC FAILURE CONGESTIVE
     Dosage: 5 MG T, TH, SAT, SUN PO
     Route: 048
     Dates: start: 20070528, end: 20070813
  2. COUMADIN [Suspect]
     Indication: PERIPHERAL VASCULAR DISORDER
     Dosage: 2.5 MG M, W, F PO
     Route: 048

REACTIONS (4)
  - DYSPNOEA [None]
  - ELECTROCARDIOGRAM QT PROLONGED [None]
  - HAEMOPTYSIS [None]
  - INTERNATIONAL NORMALISED RATIO INCREASED [None]
